FAERS Safety Report 18435043 (Version 1)
Quarter: 2020Q4

REPORT INFORMATION
  Report Type: Other
  Country: DK (occurrence: DK)
  Receive Date: 20201028
  Receipt Date: 20201028
  Transmission Date: 20210114
  Serious: Yes (Hospitalization, Other)
  Sender: FDA-Public Use
  Company Number: DK-ROCHE-2177203

PATIENT

DRUGS (6)
  1. PEGINTERFERON ALFA-2A. [Suspect]
     Active Substance: PEGINTERFERON ALFA-2A
     Indication: MYELOFIBROSIS
  2. RUXOLITINIB [Suspect]
     Active Substance: RUXOLITINIB
     Indication: MYELOFIBROSIS
  3. RUXOLITINIB [Suspect]
     Active Substance: RUXOLITINIB
     Indication: POLYCYTHAEMIA VERA
     Route: 048
  4. PEGINTERFERON ALFA-2A. [Suspect]
     Active Substance: PEGINTERFERON ALFA-2A
     Indication: POLYCYTHAEMIA VERA
     Route: 058
  5. PEGINTERFERON ALFA-2B [Suspect]
     Active Substance: PEGINTERFERON ALFA-2B
     Indication: POLYCYTHAEMIA VERA
     Route: 058
  6. PEGINTERFERON ALFA-2B [Suspect]
     Active Substance: PEGINTERFERON ALFA-2B
     Indication: MYELOFIBROSIS

REACTIONS (20)
  - Herpes zoster [Unknown]
  - Hypertension [Unknown]
  - Urinary tract infection [Unknown]
  - Thrombocytopenia [Unknown]
  - Gastrointestinal haemorrhage [Unknown]
  - Anaemia [Unknown]
  - Syncope [Unknown]
  - Proteinuria [Unknown]
  - Neutropenia [Unknown]
  - Myocardial ischaemia [Unknown]
  - Arthralgia [Unknown]
  - Myalgia [Unknown]
  - Pulmonary embolism [Unknown]
  - Acute kidney injury [Unknown]
  - Benign neoplasm of bladder [Unknown]
  - Pneumonia [Unknown]
  - Myocardial infarction [Unknown]
  - Angina pectoris [Unknown]
  - Fatigue [Unknown]
  - Ischaemia [Unknown]
